FAERS Safety Report 6711678-1 (Version None)
Quarter: 2010Q2

REPORT INFORMATION
  Report Type: 
  Country: None (occurrence: None)
  Receive Date: 20100505
  Receipt Date: 20100504
  Transmission Date: 20101027
  Serious: Yes (Other)
  Sender: FDA-Public Use
  Company Number: ES-ROXANE LABORATORIES, INC.-2010-RO-00520RO

PATIENT
  Age: 65 Year
  Sex: Male

DRUGS (3)
  1. FUROSEMIDE [Suspect]
     Indication: RENAL FAILURE CHRONIC
  2. ALLOPURINOL [Suspect]
  3. CALCIUM [Suspect]

REACTIONS (1)
  - LICHENOID KERATOSIS [None]
